FAERS Safety Report 7763761-X (Version None)
Quarter: 2011Q3

REPORT INFORMATION
  Report Type: 
  Country: None (occurrence: None)
  Receive Date: 20110916
  Receipt Date: 20110913
  Transmission Date: 20111222
  Serious: Yes (Hospitalization)
  Sender: FDA-Public Use
  Company Number: 2011SP043219

PATIENT
  Age: 23 Year
  Sex: Female

DRUGS (1)
  1. NUVARING [Suspect]
     Indication: CONTRACEPTION

REACTIONS (3)
  - SPEECH DISORDER [None]
  - VISUAL IMPAIRMENT [None]
  - HYPOAESTHESIA [None]
